FAERS Safety Report 8009186-3 (Version None)
Quarter: 2011Q4

REPORT INFORMATION
  Report Type: 
  Country: None (occurrence: None)
  Receive Date: 20111221
  Receipt Date: 20111213
  Transmission Date: 20120403
  Serious: Yes (Disabling)
  Sender: FDA-Public Use
  Company Number: 2011MA017719

PATIENT
  Age: 62 Year
  Sex: Male

DRUGS (8)
  1. ATENOLOL [Concomitant]
  2. FUROSEMIDE [Concomitant]
  3. CINCHOCAINE [Concomitant]
  4. NAPROXEN [Suspect]
     Indication: INTERMITTENT CLAUDICATION
  5. ATORVASTATIN [Concomitant]
  6. CANDESARTAN CILEXETIL [Concomitant]
  7. NICORANDIL [Concomitant]
  8. ALLOPURINOL [Concomitant]

REACTIONS (1)
  - PAIN [None]
